FAERS Safety Report 17614284 (Version 1)
Quarter: 2020Q2

REPORT INFORMATION
  Report Type: Spontaneous
  Country: US (occurrence: US)
  Receive Date: 20200402
  Receipt Date: 20200402
  Transmission Date: 20200713
  Serious: No
  Sender: FDA-Public Use
  Company Number: US-AMGEN-USASP2019218457

PATIENT
  Sex: Female

DRUGS (1)
  1. AIMOVIG [Suspect]
     Active Substance: ERENUMAB-AOOE
     Indication: MIGRAINE
     Dosage: 70 MILLIGRAM
     Route: 065

REACTIONS (6)
  - Therapeutic product effect decreased [Unknown]
  - Tremor [Unknown]
  - Weight increased [Unknown]
  - Constipation [Unknown]
  - Headache [Not Recovered/Not Resolved]
  - Palpitations [Unknown]
